FAERS Safety Report 25610712 (Version 2)
Quarter: 2025Q3

REPORT INFORMATION
  Report Type: Spontaneous
  Country: US (occurrence: US)
  Receive Date: 20250728
  Receipt Date: 20250818
  Transmission Date: 20251021
  Serious: No
  Sender: SANOFI AVENTIS
  Company Number: US-SANOFI-02592419

PATIENT
  Age: 44 Year
  Sex: Female
  Weight: 136.36 kg

DRUGS (6)
  1. DUPIXENT [Suspect]
     Active Substance: DUPILUMAB
     Indication: Asthma
     Route: 058
     Dates: start: 2025, end: 2025
  2. DUPIXENT [Suspect]
     Active Substance: DUPILUMAB
     Dosage: 300 MG, QOW
     Route: 058
     Dates: start: 20250701
  3. PREDNISONE [Concomitant]
     Active Substance: PREDNISONE
  4. GABAPENTIN [Concomitant]
     Active Substance: GABAPENTIN
  5. DICLOFENAC [Concomitant]
     Active Substance: DICLOFENAC
  6. MEDROL [Concomitant]
     Active Substance: METHYLPREDNISOLONE

REACTIONS (7)
  - Cough [Unknown]
  - Wheezing [Unknown]
  - Foreign body sensation in eyes [Recovering/Resolving]
  - Lip swelling [Not Recovered/Not Resolved]
  - Skin burning sensation [Recovered/Resolved]
  - Diarrhoea [Recovering/Resolving]
  - Incorrect dose administered [Unknown]

NARRATIVE: CASE EVENT DATE: 20250701
